FAERS Safety Report 7902300-7 (Version None)
Quarter: 2011Q4

REPORT INFORMATION
  Report Type: 
  Country: None (occurrence: None)
  Receive Date: 20111108
  Receipt Date: 20111101
  Transmission Date: 20120403
  Serious: Yes (Hospitalization)
  Sender: FDA-Public Use
  Company Number: US-ABBOTT-11P-163-0870941-00

PATIENT
  Age: 51 Year
  Sex: Male

DRUGS (2)
  1. UNKNOWN MEDICATION [Concomitant]
     Indication: PRODUCT USED FOR UNKNOWN INDICATION
  2. HUMIRA [Suspect]
     Indication: PSORIASIS
     Dosage: (80MG)
     Dates: start: 20110829, end: 20110829

REACTIONS (3)
  - MALAISE [None]
  - DYSPNOEA [None]
  - RESPIRATORY TRACT CONGESTION [None]
